FAERS Safety Report 22761428 (Version 5)
Quarter: 2024Q1

REPORT INFORMATION
  Report Type: Spontaneous
  Country: US (occurrence: US)
  Receive Date: 20230728
  Receipt Date: 20240307
  Transmission Date: 20240409
  Serious: No
  Sender: FDA-Public Use
  Company Number: US-PFIZER INC-PV202300129750

PATIENT
  Age: 65 Year
  Sex: Female
  Weight: 56.6 kg

DRUGS (3)
  1. BOSULIF [Suspect]
     Active Substance: BOSUTINIB MONOHYDRATE
     Indication: Chronic myeloid leukaemia
     Dosage: 300 MG, DAILY (300 MG= 3 TAB(S), PO, DAILY, 2 REFILLS)
     Route: 048
     Dates: start: 20190523, end: 20220301
  2. BOSULIF [Suspect]
     Active Substance: BOSUTINIB MONOHYDRATE
     Dosage: 500 MG, DAILY
     Dates: start: 202208
  3. BOSULIF [Suspect]
     Active Substance: BOSUTINIB MONOHYDRATE
     Dosage: 300 MG, DAILY (300 MG= 3 TAB(S),  DAILY, 2 REFILLS)
     Route: 048
     Dates: start: 20220808

REACTIONS (2)
  - Pruritus [Recovered/Resolved]
  - Arthralgia [Recovered/Resolved]

NARRATIVE: CASE EVENT DATE: 20220301
